FAERS Safety Report 5922647-3 (Version None)
Quarter: 2008Q3

REPORT INFORMATION
  Report Type: 
  Country: None (occurrence: None)
  Receive Date: 20080909
  Receipt Date: 20071015
  Transmission Date: 20090109
  Serious: Yes (Hospitalization)
  Sender: FDA-Public Use
  Company Number: 163-20785-06091088

PATIENT
  Age: 72 Year
  Sex: Male

DRUGS (6)
  1. THALOMID [Suspect]
     Indication: MULTIPLE MYELOMA
     Dosage: 100 MG, DAILY, ORAL
     Route: 048
     Dates: start: 20060830, end: 20060906
  2. TYLENOL W/ CODEINE NO. 3 [Concomitant]
  3. LORTAB 10/500 (VICODIN) [Concomitant]
  4. DECADRON [Concomitant]
  5. COUMADIN [Concomitant]
  6. ANTIBIOTICS (ANTIBIOTICS) [Concomitant]

REACTIONS (6)
  - GASTROENTERITIS VIRAL [None]
  - PANCYTOPENIA [None]
  - PLATELET COUNT DECREASED [None]
  - PURPURA [None]
  - PYREXIA [None]
  - WHITE BLOOD CELL COUNT DECREASED [None]
